FAERS Safety Report 4876460-9 (Version None)
Quarter: 2005Q4

REPORT INFORMATION
  Report Type: 
  Country: None (occurrence: None)
  Receive Date: 20051206
  Receipt Date: 20051019
  Transmission Date: 20060501
  Serious: No
  Sender: FDA-Public Use
  Company Number: USA0510111325

PATIENT
  Sex: Female

DRUGS (4)
  1. ZYPREXA [Suspect]
  2. CYMBALTA [Suspect]
     Indication: BIPOLAR DISORDER
     Dosage: 60 MG
  3. WELLBUTRIN [Concomitant]
  4. LAMICTAL [Concomitant]

REACTIONS (6)
  - DIFFICULTY IN WALKING [None]
  - DYSARTHRIA [None]
  - DYSPHEMIA [None]
  - MEMORY IMPAIRMENT [None]
  - SPEECH DISORDER [None]
  - VISION BLURRED [None]
